FAERS Safety Report 17467199 (Version 1)
Quarter: 2020Q1

REPORT INFORMATION
  Report Type: Spontaneous
  Country: GB (occurrence: GB)
  Receive Date: 20200227
  Receipt Date: 20200227
  Transmission Date: 20200409
  Serious: Yes (Other)
  Sender: FDA-Public Use
  Company Number: GB-PFIZER INC-2020079740

PATIENT
  Age: 76 Year
  Sex: Male
  Weight: 74 kg

DRUGS (2)
  1. AMLODIPINE BESILATE [Suspect]
     Active Substance: AMLODIPINE BESYLATE
     Dosage: 5 MG, 1X/DAY
     Dates: start: 20181217, end: 20190822
  2. TICAGRELOR. [Suspect]
     Active Substance: TICAGRELOR
     Dosage: 180 MG, 1X/DAY
     Dates: start: 20190906, end: 20200109

REACTIONS (12)
  - Headache [Recovered/Resolved]
  - Large intestine polyp [Unknown]
  - Gastrointestinal carcinoma [Unknown]
  - Mitral valve incompetence [Unknown]
  - Gingival bleeding [Recovered/Resolved]
  - Neoplasm malignant [Unknown]
  - Dyspnoea exertional [Unknown]
  - Excessive cerumen production [Unknown]
  - Tricuspid valve incompetence [Unknown]
  - Diverticulum [Unknown]
  - Arteriosclerosis coronary artery [Unknown]
  - Type 2 diabetes mellitus [Unknown]

NARRATIVE: CASE EVENT DATE: 20190625
